FAERS Safety Report 6827811-7 (Version None)
Quarter: 2010Q3

REPORT INFORMATION
  Report Type: 
  Country: None (occurrence: None)
  Receive Date: 20100709
  Receipt Date: 20070126
  Transmission Date: 20110219
  Serious: No
  Sender: FDA-Public Use
  Company Number: US-PFIZER INC-2007008445

PATIENT
  Sex: Female
  Weight: 86.18 kg

DRUGS (8)
  1. CHANTIX [Suspect]
     Indication: SMOKING CESSATION THERAPY
     Route: 048
     Dates: start: 20061222
  2. NEXIUM [Concomitant]
  3. MONTELUKAST SODIUM [Concomitant]
  4. XANAX [Concomitant]
  5. LEVOTHYROXINE SODIUM [Concomitant]
  6. SIMVASTATIN [Concomitant]
  7. PROZAC [Concomitant]
     Indication: DEPRESSION
     Dates: start: 20030101
  8. EFFEXOR [Concomitant]
     Indication: DEPRESSION
     Dates: start: 20070101

REACTIONS (2)
  - FATIGUE [None]
  - SOMNOLENCE [None]
